FAERS Safety Report 12197952 (Version 1)
Quarter: 2016Q1

REPORT INFORMATION
  Report Type: Spontaneous
  Country: US (occurrence: None)
  Receive Date: 20160321
  Receipt Date: 20160321
  Transmission Date: 20160526
  Serious: Yes (Hospitalization, Disabling)
  Sender: FDA-Public Use
  Company Number: None

PATIENT
  Age: 40 Year
  Sex: Male

DRUGS (7)
  1. COLACE [Concomitant]
     Active Substance: DOCUSATE SODIUM
  2. PROLIXIN [Suspect]
     Active Substance: FLUPHENAZINE HYDROCHLORIDE
     Indication: HALLUCINATION, AUDITORY
     Dosage: INNTO THE MUSCLE
     Route: 030
  3. TRAZODONE [Concomitant]
     Active Substance: TRAZODONE HYDROCHLORIDE
  4. CLONAZAPAM [Concomitant]
     Active Substance: CLONAZEPAM
  5. QUETIAPINE [Concomitant]
     Active Substance: QUETIAPINE
  6. CEPHALEXIN. [Concomitant]
     Active Substance: CEPHALEXIN
  7. FLUVOXAMINE [Concomitant]
     Active Substance: FLUVOXAMINE

REACTIONS (12)
  - Agitation [None]
  - Lethargy [None]
  - Dysphagia [None]
  - Depressed level of consciousness [None]
  - Restlessness [None]
  - Crying [None]
  - Hyperhidrosis [None]
  - Vision blurred [None]
  - Aphasia [None]
  - Somnolence [None]
  - Dysstasia [None]
  - Eating disorder [None]

NARRATIVE: CASE EVENT DATE: 20160310
